FAERS Safety Report 6077616-2 (Version None)
Quarter: 2009Q1

REPORT INFORMATION
  Report Type: 
  Country: None (occurrence: None)
  Receive Date: 20090126
  Receipt Date: 20080708
  Transmission Date: 20090719
  Serious: Yes (Other)
  Sender: FDA-Public Use
  Company Number: WAES 0807USA01604

PATIENT
  Sex: Male

DRUGS (1)
  1. PRIMAXIN [Suspect]
     Indication: INFECTION
     Dosage: 250 MG/IV
     Route: 042

REACTIONS (1)
  - CONVULSION [None]
